FAERS Safety Report 9834049 (Version 1)
Quarter: 2014Q1

REPORT INFORMATION
  Report Type: Spontaneous
  Country: CA (occurrence: CA)
  Receive Date: 20140122
  Receipt Date: 20140122
  Transmission Date: 20141002
  Serious: Yes (Other)
  Sender: FDA-Public Use
  Company Number: CA-ASTRAZENECA-2014SE03246

PATIENT
  Sex: Female
  Weight: 63.5 kg

DRUGS (8)
  1. ENTOCORT [Suspect]
     Route: 048
  2. APO HYDRO [Concomitant]
  3. ATENOLOL TABLETS, BP [Concomitant]
  4. COVERSYL [Concomitant]
  5. GLICLAZIDE [Concomitant]
  6. ROSUVASTATIN [Concomitant]
  7. SYNTHROID [Concomitant]
  8. ZOPICLONE [Concomitant]

REACTIONS (3)
  - Swollen tongue [Not Recovered/Not Resolved]
  - Lip swelling [Not Recovered/Not Resolved]
  - Urticaria [Not Recovered/Not Resolved]
